FAERS Safety Report 22320244 (Version 1)
Quarter: 2023Q2

REPORT INFORMATION
  Report Type: Spontaneous
  Country: IR (occurrence: IR)
  Receive Date: 20230515
  Receipt Date: 20230515
  Transmission Date: 20230722
  Serious: Yes (Hospitalization)
  Sender: FDA-Public Use
  Company Number: IR-SCILEX PHARMACEUTICALS INC.-2023SCX00024

PATIENT
  Age: 25 Year
  Sex: Male

DRUGS (4)
  1. LIDOCAINE [Suspect]
     Active Substance: LIDOCAINE
     Indication: Genital pain
     Dosage: 2 TUBES OF LIDOCAINE OINTMENT 5% (70 G/10 G)
     Route: 061
  2. LIDOCAINE [Suspect]
     Active Substance: LIDOCAINE
     Indication: Pruritus genital
  3. BENZOCAINE [Suspect]
     Active Substance: BENZOCAINE
     Indication: Genital pain
     Dosage: 2 TUBES OF BENZOCAINE OINTMENT 5% (60 G/10 G)
     Route: 061
  4. BENZOCAINE [Suspect]
     Active Substance: BENZOCAINE
     Indication: Pruritus genital

REACTIONS (2)
  - Methaemoglobinaemia [Recovered/Resolved]
  - Haemolysis [Recovered/Resolved]
